FAERS Safety Report 26056359 (Version 1)
Quarter: 2025Q4

REPORT INFORMATION
  Report Type: Spontaneous
  Country: GB (occurrence: GB)
  Receive Date: 20251118
  Receipt Date: 20251118
  Transmission Date: 20260117
  Serious: Yes (Death)
  Sender: CELLTRION
  Company Number: GB-CELLTRION INC.-2025GB041557

PATIENT

DRUGS (2)
  1. YUFLYMA [Suspect]
     Active Substance: ADALIMUMAB-AATY
     Indication: Psoriasis
     Dosage: INJECT ONE PRE-FILLED PEN EVERY TWO WEEKS/ 2 X YUFLYMA 40MG FOR INJECTION PENS
     Route: 058
     Dates: start: 202505, end: 202510
  2. YUFLYMA [Suspect]
     Active Substance: ADALIMUMAB-AATY

REACTIONS (1)
  - Death [Fatal]

NARRATIVE: CASE EVENT DATE: 20251019
